FAERS Safety Report 10525176 (Version 1)
Quarter: 2014Q4

REPORT INFORMATION
  Report Type: Spontaneous
  Country: US (occurrence: None)
  Receive Date: 20141015
  Receipt Date: 20141015
  Transmission Date: 20150528
  Serious: No
  Sender: FDA-Public Use
  Company Number: None

PATIENT

DRUGS (4)
  1. HYDROXYCHLOROQUINE [Suspect]
     Active Substance: HYDROXYCHLOROQUINE
  2. PRIMAQUINE [Suspect]
     Active Substance: PRIMAQUINE PHOSPHATE
  3. PYRIMETHAMINE [Suspect]
     Active Substance: PYRIMETHAMINE
  4. QUININE [Suspect]
     Active Substance: QUININE

REACTIONS (1)
  - Intercepted drug prescribing error [None]
